FAERS Safety Report 10073252 (Version 1)
Quarter: 2014Q2

REPORT INFORMATION
  Report Type: Spontaneous
  Country: TR (occurrence: TR)
  Receive Date: 20140411
  Receipt Date: 20140411
  Transmission Date: 20141212
  Serious: Yes (Other)
  Sender: FDA-Public Use
  Company Number: TR-TEVA-473825ISR

PATIENT
  Sex: 0

DRUGS (4)
  1. METHOTREXATE [Suspect]
     Route: 037
  2. VINCRISTINE [Suspect]
  3. L-ASPARAGINASE [Suspect]
  4. IFOSFAMIDE [Suspect]

REACTIONS (1)
  - Nervous system disorder [Unknown]
